FAERS Safety Report 17455600 (Version 2)
Quarter: 2020Q2

REPORT INFORMATION
  Report Type: Spontaneous
  Country: CA (occurrence: CA)
  Receive Date: 20200225
  Receipt Date: 20200421
  Transmission Date: 20200713
  Serious: Yes (Other)
  Sender: FDA-Public Use
  Company Number: CA-CELLTRION INC.-2020CA019361

PATIENT

DRUGS (3)
  1. INFLECTRA [Suspect]
     Active Substance: INFLIXIMAB-DYYB
     Dosage: 500 MG EVERY 8 WEEKS
     Route: 042
     Dates: start: 20200413
  2. INFLECTRA [Suspect]
     Active Substance: INFLIXIMAB-DYYB
     Indication: COLITIS ULCERATIVE
     Dosage: 500 MG EVERY 8 WEEKS
     Route: 042
     Dates: start: 20200210
  3. ASACOL [Concomitant]
     Active Substance: MESALAMINE
     Indication: COLITIS ULCERATIVE
     Dosage: 800 MG, 3X/DAY
     Route: 048

REACTIONS (1)
  - Blood pressure fluctuation [Unknown]

NARRATIVE: CASE EVENT DATE: 20200210
